FAERS Safety Report 24114411 (Version 2)
Quarter: 2024Q3

REPORT INFORMATION
  Report Type: Spontaneous
  Country: NZ (occurrence: NZ)
  Receive Date: 20240720
  Receipt Date: 20240816
  Transmission Date: 20241017
  Serious: Yes (Other)
  Sender: RANBAXY
  Company Number: NZ-SUN PHARMACEUTICAL INDUSTRIES LTD-2024R1-454084

PATIENT
  Age: 67 Year
  Sex: Male

DRUGS (1)
  1. DOCETAXEL [Suspect]
     Active Substance: DOCETAXEL\DOCETAXEL ANHYDROUS
     Indication: Prostate cancer metastatic
     Dosage: UNK
     Route: 065

REACTIONS (2)
  - Macular oedema [Recovered/Resolved]
  - Blindness [Unknown]
